FAERS Safety Report 4905265-5 (Version None)
Quarter: 2006Q1

REPORT INFORMATION
  Report Type: 
  Country: None (occurrence: None)
  Receive Date: 20060208
  Receipt Date: 20051128
  Transmission Date: 20060701
  Serious: No
  Sender: FDA-Public Use
  Company Number: US-GLAXOSMITHKLINE-A0584862A

PATIENT

DRUGS (1)
  1. PAXIL [Suspect]
     Indication: DRUG USE FOR UNKNOWN INDICATION
     Route: 048

REACTIONS (6)
  - DIZZINESS [None]
  - EUPHORIC MOOD [None]
  - FEELING ABNORMAL [None]
  - FEELING HOT AND COLD [None]
  - NAUSEA [None]
  - SLEEP DISORDER [None]
